FAERS Safety Report 18320478 (Version 1)
Quarter: 2020Q3

REPORT INFORMATION
  Report Type: Spontaneous
  Country: DE (occurrence: DE)
  Receive Date: 20200929
  Receipt Date: 20200929
  Transmission Date: 20201103
  Serious: No
  Sender: FDA-Public Use
  Company Number: DE-TOLMAR, INC.-20DE022707

PATIENT
  Sex: Male

DRUGS (1)
  1. ELIGARD [Suspect]
     Active Substance: LEUPROLIDE ACETATE
     Indication: LIBIDO INCREASED
     Dosage: 7.5 MG, Q 1 MONTH
     Route: 065

REACTIONS (2)
  - Off label use [Unknown]
  - Product supply issue [Unknown]
